FAERS Safety Report 21689448 (Version 1)
Quarter: 2022Q4

REPORT INFORMATION
  Report Type: Spontaneous
  Country: US (occurrence: None)
  Receive Date: 20221205
  Receipt Date: 20221205
  Transmission Date: 20230112
  Serious: Yes (Hospitalization)
  Sender: FDA-Public Use
  Company Number: None

PATIENT
  Sex: Male

DRUGS (1)
  1. INLYTA [Suspect]
     Active Substance: AXITINIB
     Indication: Lung neoplasm malignant
     Dosage: 5MG TWICE DAILY ORAL?
     Route: 048
     Dates: start: 202211

REACTIONS (3)
  - Seizure [None]
  - Blood potassium increased [None]
  - Therapy cessation [None]
